FAERS Safety Report 23558184 (Version 2)
Quarter: 2025Q2

REPORT INFORMATION
  Report Type: Report from Study
  Country: US (occurrence: US)
  Receive Date: 20240223
  Receipt Date: 20250402
  Transmission Date: 20250716
  Serious: Yes (Other)
  Sender: JAZZ
  Company Number: US-JAZZ-2022-US-010008

PATIENT
  Sex: Female
  Weight: 74.9 kg

DRUGS (4)
  1. XYREM [Suspect]
     Active Substance: SODIUM OXYBATE
     Indication: Narcolepsy
     Dosage: 2.25 GRAM, BID
     Route: 048
     Dates: start: 202203
  2. XYREM [Suspect]
     Active Substance: SODIUM OXYBATE
     Indication: Cataplexy
  3. XYREM [Suspect]
     Active Substance: SODIUM OXYBATE
     Indication: Somnolence
  4. MOUNJARO [Concomitant]
     Active Substance: TIRZEPATIDE
     Indication: Product used for unknown indication
     Dates: start: 20231006

REACTIONS (10)
  - Surgery [Unknown]
  - Suicidal behaviour [Recovered/Resolved]
  - Peripheral swelling [Unknown]
  - Illness [Unknown]
  - Tremor [Unknown]
  - Dehydration [Unknown]
  - Chromaturia [Unknown]
  - Paraesthesia [Unknown]
  - Palpitations [Recovered/Resolved]
  - Expired product administered [Unknown]
